FAERS Safety Report 22212691 (Version 3)
Quarter: 2023Q2

REPORT INFORMATION
  Report Type: Spontaneous
  Country: US (occurrence: US)
  Receive Date: 20230414
  Receipt Date: 20230428
  Transmission Date: 20230722
  Serious: Yes (Other)
  Sender: FDA-Public Use
  Company Number: US-AMGEN-USASP2023060388

PATIENT
  Sex: Female

DRUGS (1)
  1. PROLIA [Suspect]
     Active Substance: DENOSUMAB
     Indication: Osteoporosis postmenopausal
     Dosage: UNK
     Route: 065

REACTIONS (10)
  - Spinal fracture [Unknown]
  - Hip fracture [Unknown]
  - Unevaluable event [Unknown]
  - Palpitations [Unknown]
  - Gastrooesophageal reflux disease [Unknown]
  - Chest pain [Unknown]
  - Asthenia [Unknown]
  - Rebound effect [Unknown]
  - Feeling abnormal [Unknown]
  - Ill-defined disorder [Unknown]
